FAERS Safety Report 17679093 (Version 2)
Quarter: 2021Q2

REPORT INFORMATION
  Report Type: Spontaneous
  Country: US (occurrence: US)
  Receive Date: 20200417
  Receipt Date: 20210415
  Transmission Date: 20210716
  Serious: Yes (Other)
  Sender: FDA-Public Use
  Company Number: US-ASTRAZENECA-2020SE50533

PATIENT
  Age: 25766 Day
  Sex: Female
  Weight: 89.4 kg

DRUGS (67)
  1. NEURONTIN [Concomitant]
     Active Substance: GABAPENTIN
  2. NORVASC [Concomitant]
     Active Substance: AMLODIPINE BESYLATE
  3. NITROFURANTOIN. [Concomitant]
     Active Substance: NITROFURANTOIN
  4. GLIMEPIRIDE. [Concomitant]
     Active Substance: GLIMEPIRIDE
     Route: 048
     Dates: start: 20131008
  5. AGGRENOX [Concomitant]
     Active Substance: ASPIRIN\DIPYRIDAMOLE
     Route: 065
     Dates: start: 20070402
  6. ISOSORBIDE MONONITRATE. [Concomitant]
     Active Substance: ISOSORBIDE MONONITRATE
  7. CITALOPRAM [Concomitant]
     Active Substance: CITALOPRAM HYDROBROMIDE
  8. ENDOCET [Concomitant]
     Active Substance: ACETAMINOPHEN\OXYCODONE HYDROCHLORIDE
  9. METOPROLOL. [Concomitant]
     Active Substance: METOPROLOL
  10. FLEXERIL [Concomitant]
     Active Substance: CYCLOBENZAPRINE HYDROCHLORIDE
  11. AMPICILLIN [Concomitant]
     Active Substance: AMPICILLIN
  12. OCUVITE [Concomitant]
     Active Substance: VITAMINS
  13. LIDODERM [Concomitant]
     Active Substance: LIDOCAINE
     Route: 065
     Dates: start: 20140114
  14. TRIMETHOPRIM. [Concomitant]
     Active Substance: TRIMETHOPRIM
  15. NYSTATIN. [Concomitant]
     Active Substance: NYSTATIN
  16. BACLOFEN. [Concomitant]
     Active Substance: BACLOFEN
  17. CLONIDINE. [Concomitant]
     Active Substance: CLONIDINE
  18. SYNTHROID [Concomitant]
     Active Substance: LEVOTHYROXINE SODIUM
  19. LORCET [Concomitant]
     Active Substance: ACETAMINOPHEN\HYDROCODONE BITARTRATE
  20. ERGOCALCIFEROL. [Concomitant]
     Active Substance: ERGOCALCIFEROL
     Route: 065
     Dates: start: 20150924
  21. JANUVIA [Concomitant]
     Active Substance: SITAGLIPTIN PHOSPHATE
  22. TRILIPIX [Concomitant]
     Active Substance: FENOFIBRIC ACID
  23. PREVACID [Suspect]
     Active Substance: LANSOPRAZOLE
     Route: 065
     Dates: start: 199001, end: 201201
  24. PREVACID 24 HR [Suspect]
     Active Substance: LANSOPRAZOLE
     Route: 065
     Dates: start: 199001, end: 201201
  25. PROTONIX [Suspect]
     Active Substance: PANTOPRAZOLE SODIUM
     Route: 065
     Dates: start: 199001, end: 201201
  26. PROTONIX [Suspect]
     Active Substance: PANTOPRAZOLE SODIUM
     Route: 065
     Dates: start: 20071008
  27. INSULIN [Concomitant]
     Active Substance: INSULIN NOS
  28. NOVOLOG [Concomitant]
     Active Substance: INSULIN ASPART
  29. LORTAB [Concomitant]
     Active Substance: ACETAMINOPHEN\HYDROCODONE BITARTRATE
  30. CIPROFLOXACIN. [Concomitant]
     Active Substance: CIPROFLOXACIN
  31. SOMA [Concomitant]
     Active Substance: CARISOPRODOL
     Dosage: 350.0MG AS REQUIRED
     Route: 048
     Dates: start: 20140114
  32. DIGOXIN. [Concomitant]
     Active Substance: DIGOXIN
  33. METHYLPREDNISOLONE. [Concomitant]
     Active Substance: METHYLPREDNISOLONE
  34. TERBINAFINE. [Concomitant]
     Active Substance: TERBINAFINE
  35. ALPRAZOLAM. [Concomitant]
     Active Substance: ALPRAZOLAM
  36. OFLOXACIN. [Concomitant]
     Active Substance: OFLOXACIN
  37. PAROXETIN [Concomitant]
     Active Substance: PAROXETINE HYDROCHLORIDE
  38. LIPITOR [Concomitant]
     Active Substance: ATORVASTATIN CALCIUM
  39. FENOFIBRATE. [Concomitant]
     Active Substance: FENOFIBRATE
  40. LASIX [Concomitant]
     Active Substance: FUROSEMIDE
  41. TRAMADOL. [Concomitant]
     Active Substance: TRAMADOL
  42. HYDROCHLOROTHIAZIDE. [Concomitant]
     Active Substance: HYDROCHLOROTHIAZIDE
  43. MAGNESIUM OXIDE. [Concomitant]
     Active Substance: MAGNESIUM OXIDE
     Route: 048
     Dates: start: 20150924
  44. SIMVASTATIN. [Concomitant]
     Active Substance: SIMVASTATIN
     Route: 048
     Dates: start: 20131008
  45. FOLIC ACID. [Concomitant]
     Active Substance: FOLIC ACID
     Route: 048
     Dates: start: 20140114
  46. FLUOCINONIDE. [Concomitant]
     Active Substance: FLUOCINONIDE
  47. TAMSULOSIN [Concomitant]
     Active Substance: TAMSULOSIN
  48. CLONAZEPAM. [Concomitant]
     Active Substance: CLONAZEPAM
     Route: 048
     Dates: start: 20131008
  49. PROMETHAZINE [Concomitant]
     Active Substance: PROMETHAZINE HYDROCHLORIDE
     Route: 048
     Dates: start: 20140114
  50. LUNESTA [Concomitant]
     Active Substance: ESZOPICLONE
  51. CEPHALEXIN. [Concomitant]
     Active Substance: CEPHALEXIN
  52. PROVIGIL [Concomitant]
     Active Substance: MODAFINIL
  53. METHOCARBAMOL. [Concomitant]
     Active Substance: METHOCARBAMOL
  54. PREVACID [Suspect]
     Active Substance: LANSOPRAZOLE
     Route: 048
     Dates: start: 20100621
  55. VANCOMYCIN [Concomitant]
     Active Substance: VANCOMYCIN
  56. FERROUS SULFATE. [Concomitant]
     Active Substance: FERROUS SULFATE
     Route: 048
     Dates: start: 20150924
  57. DIOVAN [Concomitant]
     Active Substance: VALSARTAN
  58. CRESTOR [Concomitant]
     Active Substance: ROSUVASTATIN CALCIUM
  59. CLOPIDOGREL [Concomitant]
     Active Substance: CLOPIDOGREL BISULFATE
  60. PRILOSEC [Suspect]
     Active Substance: OMEPRAZOLE MAGNESIUM
     Route: 048
     Dates: start: 199001, end: 201201
  61. LOSARTAN. [Concomitant]
     Active Substance: LOSARTAN
  62. PROAIR HFA [Concomitant]
     Active Substance: ALBUTEROL SULFATE
  63. FAMOTIDINE. [Concomitant]
     Active Substance: FAMOTIDINE
     Route: 048
     Dates: start: 20150924
  64. BUSPIRONE [Concomitant]
     Active Substance: BUSPIRONE HYDROCHLORIDE
  65. NITROGLYCERINE [Concomitant]
     Active Substance: NITROGLYCERIN
  66. AMITRIPTYLINE [Concomitant]
     Active Substance: AMITRIPTYLINE
  67. BENICAR [Concomitant]
     Active Substance: OLMESARTAN MEDOXOMIL

REACTIONS (2)
  - Chronic kidney disease [Unknown]
  - Nephrogenic anaemia [Unknown]

NARRATIVE: CASE EVENT DATE: 20070802
